FAERS Safety Report 6414364-0 (Version None)
Quarter: 2009Q4

REPORT INFORMATION
  Report Type: 
  Country: None (occurrence: None)
  Receive Date: 20091021
  Receipt Date: 20091009
  Transmission Date: 20100525
  Serious: Yes (Life-Threatening, Hospitalization)
  Sender: FDA-Public Use
  Company Number: SPV1-2009-01988

PATIENT
  Age: 69 Year
  Sex: Female

DRUGS (2)
  1. ANAGRELIDE HCL [Suspect]
     Indication: ESSENTIAL THROMBOCYTHAEMIA
     Dosage: 1.5 MG, 1 X/DAY:QD, ORAL
     Route: 048
     Dates: start: 20090701
  2. ASPEGIC	/00002701/ (ACETYLSALICYLIC ACID) [Concomitant]

REACTIONS (3)
  - ADRENAL HAEMORRHAGE [None]
  - CEREBRAL HAEMORRHAGE [None]
  - SUBARACHNOID HAEMORRHAGE [None]
